FAERS Safety Report 17062071 (Version 5)
Quarter: 2020Q1

REPORT INFORMATION
  Report Type: Report from Study
  Country: None (occurrence: FI)
  Receive Date: 20191121
  Receipt Date: 20200102
  Transmission Date: 20200409
  Serious: Yes (Hospitalization)
  Sender: FDA-Public Use
  Company Number: FI-ABBVIE-19K-055-3002050-00

PATIENT
  Age: 73 Year
  Sex: Female
  Weight: 55 kg

DRUGS (3)
  1. DUODOPA [Suspect]
     Active Substance: CARBIDOPA\LEVODOPA
     Dosage: CD 2.4 ML; ED 1.0 ML
     Route: 050
     Dates: start: 20191111, end: 2019
  2. DUODOPA [Suspect]
     Active Substance: CARBIDOPA\LEVODOPA
     Indication: PARKINSON^S DISEASE
     Dosage: 20 MG/ML 5 MG/ML
     Route: 050
     Dates: start: 20191104, end: 20191111
  3. DUODOPA [Suspect]
     Active Substance: CARBIDOPA\LEVODOPA
     Dosage: MD 7 ML, FORENOON 2.4 OR 2.5 ML/H, AFTERNOON 2.6 ML/H, 16 H TREATMENT
     Route: 050
     Dates: start: 2019

REACTIONS (20)
  - General physical health deterioration [Unknown]
  - Device dispensing error [Recovered/Resolved]
  - Parkinsonian gait [Not Recovered/Not Resolved]
  - Pyrexia [Unknown]
  - Product physical issue [Unknown]
  - Stoma complication [Not Recovered/Not Resolved]
  - Device issue [Not Recovered/Not Resolved]
  - Device issue [Unknown]
  - Unevaluable event [Not Recovered/Not Resolved]
  - Stoma site abscess [Recovering/Resolving]
  - Device dispensing error [Recovered/Resolved]
  - Device kink [Not Recovered/Not Resolved]
  - Device battery issue [Unknown]
  - Stoma site discharge [Recovering/Resolving]
  - Dysgeusia [Unknown]
  - Stoma site haemorrhage [Recovering/Resolving]
  - Product storage error [Unknown]
  - Inflammation of wound [Recovering/Resolving]
  - Inflammatory marker increased [Unknown]
  - Device difficult to use [Unknown]

NARRATIVE: CASE EVENT DATE: 2019
